FAERS Safety Report 18314225 (Version 1)
Quarter: 2020Q3

REPORT INFORMATION
  Report Type: Report from Study
  Country: None (occurrence: US)
  Receive Date: 20200926
  Receipt Date: 20200926
  Transmission Date: 20201103
  Serious: Yes (Other)
  Sender: FDA-Public Use
  Company Number: US-ABBVIE-20K-163-3519114-00

PATIENT
  Sex: Female

DRUGS (1)
  1. HUMIRA [Suspect]
     Active Substance: ADALIMUMAB
     Indication: RHEUMATOID ARTHRITIS
     Dosage: CITRATE FREE
     Route: 058

REACTIONS (4)
  - Uterine leiomyoma [Not Recovered/Not Resolved]
  - Vaginal haemorrhage [Unknown]
  - Diverticulitis [Recovering/Resolving]
  - Endometriosis [Not Recovered/Not Resolved]
